FAERS Safety Report 13285347 (Version 1)
Quarter: 2017Q1

REPORT INFORMATION
  Report Type: Spontaneous
  Country: US (occurrence: US)
  Receive Date: 20170301
  Receipt Date: 20170301
  Transmission Date: 20170428
  Serious: Yes (Other)
  Sender: FDA-Public Use
  Company Number: PHEH2017US005620

PATIENT
  Sex: Female

DRUGS (3)
  1. FORADIL [Suspect]
     Active Substance: FORMOTEROL FUMARATE
     Dosage: UNK, ONCE/SINGLE (EVERY 03 DAYS)
     Route: 055
  2. FORADIL [Suspect]
     Active Substance: FORMOTEROL FUMARATE
     Dosage: DOSE REDUCED
     Route: 055
  3. FORADIL [Suspect]
     Active Substance: FORMOTEROL FUMARATE
     Indication: CHRONIC OBSTRUCTIVE PULMONARY DISEASE
     Dosage: 2 DF, QD
     Route: 055

REACTIONS (6)
  - Tremor [Not Recovered/Not Resolved]
  - Throat irritation [Not Recovered/Not Resolved]
  - Sleep disorder [Not Recovered/Not Resolved]
  - Dyspnoea [Not Recovered/Not Resolved]
  - Painful respiration [Not Recovered/Not Resolved]
  - Chronic obstructive pulmonary disease [Not Recovered/Not Resolved]
